FAERS Safety Report 16777345 (Version 2)
Quarter: 2019Q3

REPORT INFORMATION
  Report Type: Spontaneous
  Country: US (occurrence: US)
  Receive Date: 20190905
  Receipt Date: 20190909
  Transmission Date: 20191005
  Serious: No
  Sender: FDA-Public Use
  Company Number: US-PFIZER INC-2019383506

PATIENT
  Age: 59 Year
  Sex: Female
  Weight: 91 kg

DRUGS (3)
  1. PREGABALIN. [Suspect]
     Active Substance: PREGABALIN
     Indication: NECK PAIN
  2. PREGABALIN. [Suspect]
     Active Substance: PREGABALIN
     Indication: SPINAL PAIN
  3. PREGABALIN. [Suspect]
     Active Substance: PREGABALIN
     Indication: FIBROMYALGIA
     Dosage: 300 MG, 2X/DAY (150 MG TWO CAPSULES IN THE MORNING AND TWO IN THE EVENING)
     Dates: start: 20190829

REACTIONS (2)
  - Drug intolerance [Unknown]
  - Drug ineffective [Unknown]

NARRATIVE: CASE EVENT DATE: 2019
